FAERS Safety Report 7551557-3 (Version None)
Quarter: 2011Q2

REPORT INFORMATION
  Report Type: 
  Country: None (occurrence: None)
  Receive Date: 20110616
  Receipt Date: 20110607
  Transmission Date: 20111010
  Serious: Yes (Hospitalization)
  Sender: FDA-Public Use
  Company Number: US-AMGEN-USASP2011029456

PATIENT

DRUGS (2)
  1. ENBREL [Suspect]
     Dosage: 50 MG, QWK
     Route: 064
     Dates: start: 20040101, end: 20070101
  2. ENBREL [Suspect]
     Dosage: 50 MG, QWK
     Dates: end: 20100601

REACTIONS (2)
  - PREMATURE BABY [None]
  - UMBILICAL CORD AROUND NECK [None]
